FAERS Safety Report 6549013-4 (Version None)
Quarter: 2010Q1

REPORT INFORMATION
  Report Type: 
  Country: None (occurrence: None)
  Receive Date: 20100119
  Receipt Date: 20100104
  Transmission Date: 20100710
  Serious: Yes (Hospitalization)
  Sender: FDA-Public Use
  Company Number: 20100001

PATIENT
  Age: 22 Year
  Sex: Female

DRUGS (1)
  1. VENOFER [Suspect]
     Indication: MICROCYTIC ANAEMIA
     Dosage: 3 DOSES: 100MG, 200MG, 300MG INTRAVENOUS
     Route: 042

REACTIONS (1)
  - PANCYTOPENIA [None]
